FAERS Safety Report 7950495-1 (Version None)
Quarter: 2011Q4

REPORT INFORMATION
  Report Type: 
  Country: None (occurrence: None)
  Receive Date: 20111130
  Receipt Date: 20111121
  Transmission Date: 20120403
  Serious: Yes (Other)
  Sender: FDA-Public Use
  Company Number: US-ASTRAZENECA-2009UW06228

PATIENT
  Age: 68 Year
  Sex: Female

DRUGS (6)
  1. NEXIUM [Suspect]
     Indication: GASTROOESOPHAGEAL REFLUX DISEASE
     Route: 048
  2. TOBRAMYCIN [Concomitant]
  3. PROGRAF [Concomitant]
  4. 28 OTHER UNSPECIFIED DRUGS [Concomitant]
  5. MYCOPHENOLATE MOFETIL (CELLCEPT) [Concomitant]
  6. ACCOLATE [Suspect]
     Indication: ASTHMA
     Route: 048

REACTIONS (3)
  - RENAL FAILURE CHRONIC [None]
  - LUNG TRANSPLANT REJECTION [None]
  - INFECTION [None]
